FAERS Safety Report 4811299-1 (Version None)
Quarter: 2005Q4

REPORT INFORMATION
  Report Type: 
  Country: None (occurrence: None)
  Receive Date: 20051026
  Receipt Date: 20051026
  Transmission Date: 20060501
  Serious: Yes (Hospitalization)
  Sender: FDA-Public Use
  Company Number: None

PATIENT
  Sex: Male
  Weight: 109.3169 kg

DRUGS (1)
  1. CLONAZEPAM [Suspect]
     Indication: MUSCLE SPASMS
     Dosage: 0.5MG   BID   PO
     Route: 048
     Dates: start: 20041022, end: 20050821

REACTIONS (1)
  - GAIT DISTURBANCE [None]
